FAERS Safety Report 7693886-9 (Version None)
Quarter: 2011Q3

REPORT INFORMATION
  Report Type: 
  Country: None (occurrence: None)
  Receive Date: 20110819
  Receipt Date: 20110817
  Transmission Date: 20111222
  Serious: Yes (Death)
  Sender: FDA-Public Use
  Company Number: JP-B.I. PHARMACEUTICALS,INC./RIDGEFIELD-2011-BP-20172NB

PATIENT
  Age: 61 Year
  Sex: Female

DRUGS (13)
  1. ALFAROL [Concomitant]
     Dosage: 0.25 MG
     Route: 065
  2. RABEPRAZOLE SODIUM [Concomitant]
     Dosage: 10 MG
     Route: 065
  3. EXFORGE [Concomitant]
     Indication: HYPERTENSION
     Route: 065
  4. LASIX [Concomitant]
     Dosage: 40 MG
     Route: 065
  5. FOSRENOL [Concomitant]
     Dosage: 1500 MG
     Route: 065
  6. CALCIUM COMPOUNDS AND PREPARATIONS [Concomitant]
     Dosage: 2000 MG
     Route: 065
  7. TRANEXAMIC ACID [Concomitant]
     Dosage: 2250 MG
     Route: 065
  8. PRADAXA [Suspect]
     Indication: THROMBOSIS PROPHYLAXIS
     Dosage: 220 MG
     Route: 048
     Dates: start: 20110722, end: 20110801
  9. DOXAZOSIN MESYLATE [Concomitant]
     Indication: HYPERTENSION
     Dosage: 2 MG
     Route: 065
  10. PURSENNID [Concomitant]
     Dosage: 1DF
     Route: 065
  11. ADALAT [Concomitant]
     Indication: HYPERTENSION
     Dosage: 60 MG
     Route: 065
  12. ASPIRIN [Suspect]
     Indication: THROMBOSIS PROPHYLAXIS
     Dosage: 100 MG
     Route: 065
     Dates: end: 20110801
  13. ALDOMET [Concomitant]
     Dosage: 375 MG
     Route: 065

REACTIONS (1)
  - CEREBRAL HAEMORRHAGE [None]
